FAERS Safety Report 20187435 (Version 4)
Quarter: 2022Q1

REPORT INFORMATION
  Report Type: Report from Study
  Country: CL (occurrence: CL)
  Receive Date: 20211215
  Receipt Date: 20220107
  Transmission Date: 20220423
  Serious: Yes (Hospitalization)
  Sender: FDA-Public Use
  Company Number: CL-NOVARTISPH-NVSC2021CL280494

PATIENT
  Age: 70 Year
  Sex: Female

DRUGS (2)
  1. KISQALI [Suspect]
     Active Substance: RIBOCICLIB
     Indication: Breast cancer
     Dosage: 600 MG, QD
     Route: 048
     Dates: start: 20211104, end: 202112
  2. KISQALI [Suspect]
     Active Substance: RIBOCICLIB
     Dosage: UNK, TID
     Route: 048
     Dates: start: 20211206

REACTIONS (10)
  - Functional gastrointestinal disorder [Unknown]
  - Pulmonary oedema [Unknown]
  - Eating disorder [Unknown]
  - Asthenia [Unknown]
  - Malaise [Not Recovered/Not Resolved]
  - Depression [Unknown]
  - Ill-defined disorder [Unknown]
  - Pain [Unknown]
  - Somnolence [Unknown]
  - Product availability issue [Unknown]

NARRATIVE: CASE EVENT DATE: 20211120
